FAERS Safety Report 14182853 (Version 1)
Quarter: 2017Q4

REPORT INFORMATION
  Report Type: Spontaneous
  Country: US (occurrence: US)
  Receive Date: 20171113
  Receipt Date: 20171113
  Transmission Date: 20180321
  Serious: No
  Sender: FDA-Public Use
  Company Number: US-GLAXOSMITHKLINE-US2017172683

PATIENT
  Age: 50 Year
  Sex: Female

DRUGS (17)
  1. BENADRYL [Concomitant]
     Active Substance: DIPHENHYDRAMINE HYDROCHLORIDE
  2. METFORMIN [Concomitant]
     Active Substance: METFORMIN HYDROCHLORIDE
  3. DIAZEPAM. [Concomitant]
     Active Substance: DIAZEPAM
  4. DIFLUCAN [Concomitant]
     Active Substance: FLUCONAZOLE
  5. MUCINEX [Concomitant]
     Active Substance: GUAIFENESIN
  6. NOVOLOG [Concomitant]
     Active Substance: INSULIN ASPART
  7. LISINOPRIL. [Concomitant]
     Active Substance: LISINOPRIL
  8. ADVAIR DISKUS [Suspect]
     Active Substance: FLUTICASONE PROPIONATE\SALMETEROL XINAFOATE
     Indication: LUNG DISORDER
     Dosage: 1 PUFF(S), BID
     Route: 055
     Dates: start: 20171109
  9. ADVAIR DISKUS [Suspect]
     Active Substance: FLUTICASONE PROPIONATE\SALMETEROL XINAFOATE
     Indication: HYPOPNOEA
  10. ATORVASTATIN [Concomitant]
     Active Substance: ATORVASTATIN
  11. RANITIDINE. [Concomitant]
     Active Substance: RANITIDINE
  12. TOUJEO [Concomitant]
     Active Substance: INSULIN GLARGINE
  13. GABAPENTIN. [Concomitant]
     Active Substance: GABAPENTIN
  14. PHENERGAN [Concomitant]
     Active Substance: PROMETHAZINE HYDROCHLORIDE
  15. ZOFRAN [Concomitant]
     Active Substance: ONDANSETRON HYDROCHLORIDE
  16. PROTONIX [Concomitant]
     Active Substance: PANTOPRAZOLE SODIUM
  17. TOPAMAX [Concomitant]
     Active Substance: TOPIRAMATE

REACTIONS (3)
  - Product use in unapproved indication [Unknown]
  - Dizziness [Recovered/Resolved]
  - Circumstance or information capable of leading to device use error [Unknown]

NARRATIVE: CASE EVENT DATE: 20171109
